FAERS Safety Report 5518147-5 (Version None)
Quarter: 2007Q4

REPORT INFORMATION
  Report Type: 
  Country: None (occurrence: None)
  Receive Date: 20071113
  Receipt Date: 20071108
  Transmission Date: 20080405
  Serious: Yes (Hospitalization, Disabling, Other)
  Sender: FDA-Public Use
  Company Number: TCI2005A04609

PATIENT
  Age: 77 Year
  Sex: Male

DRUGS (3)
  1. LANSAP 400 [Suspect]
     Indication: GASTRIC ULCER
     Dosage: 1 CARD (0.5 CARD, 2 IN 1 D), PER ORAL
     Route: 048
     Dates: start: 20050927, end: 20070930
  2. LIPITOR [Concomitant]
  3. KETAS (IBUDILAST) [Concomitant]

REACTIONS (3)
  - MULTI-ORGAN FAILURE [None]
  - RENAL FAILURE ACUTE [None]
  - STEVENS-JOHNSON SYNDROME [None]
